FAERS Safety Report 8614873-X (Version None)
Quarter: 2012Q3

REPORT INFORMATION
  Report Type: 
  Country: None (occurrence: None)
  Receive Date: 20120823
  Receipt Date: 20120615
  Transmission Date: 20120928
  Serious: No
  Sender: FDA-Public Use
  Company Number: US-BRISTOL-MYERS SQUIBB COMPANY-16677189

PATIENT
  Age: 60 Year
  Sex: Male

DRUGS (1)
  1. KOMBIGLYZE XR [Suspect]

REACTIONS (2)
  - PYREXIA [None]
  - DIARRHOEA [None]
